FAERS Safety Report 4366966-3 (Version None)
Quarter: 2004Q2

REPORT INFORMATION
  Report Type: 
  Country: None (occurrence: None)
  Receive Date: 20040528
  Receipt Date: 20040517
  Transmission Date: 20050107
  Serious: Yes (Other)
  Sender: FDA-Public Use
  Company Number: PHBS2004NL06756

PATIENT
  Age: 31 Year
  Sex: Female

DRUGS (6)
  1. TEGRETOL-XR [Suspect]
     Indication: EPILEPSY
     Dosage: 200 MG, TID
     Route: 048
  2. PLAQUENIL [Concomitant]
     Dosage: 1 TABLET/DAY
     Route: 048
  3. PLAQUENIL [Concomitant]
     Dosage: 2 TABLETS/DAY
     Route: 048
  4. ACETAMINOPHEN [Concomitant]
     Dosage: 1 TABLET/2.5 TIMES/DAY
     Route: 048
  5. SURGAM [Concomitant]
     Dosage: 300 MG/DAY
     Route: 048
     Dates: start: 19980806
  6. ARTHROTEC [Concomitant]
     Indication: ARTHROPATHY
     Dosage: 75 MG, BID
     Route: 048
     Dates: start: 19981015

REACTIONS (5)
  - ABORTION SPONTANEOUS [None]
  - ANTIPHOSPHOLIPID ANTIBODIES POSITIVE [None]
  - DRUG EXPOSURE DURING PREGNANCY [None]
  - LEUKOPENIA [None]
  - LYMPHOPENIA [None]
